FAERS Safety Report 7525807-3 (Version None)
Quarter: 2011Q2

REPORT INFORMATION
  Report Type: 
  Country: None (occurrence: None)
  Receive Date: 20110606
  Receipt Date: 20110406
  Transmission Date: 20111010
  Serious: No
  Sender: FDA-Public Use
  Company Number: A0921655A

PATIENT
  Age: 58 Year
  Sex: Female

DRUGS (6)
  1. TRAZODONE HCL [Concomitant]
  2. NEURONTIN [Concomitant]
  3. HYDROXYZINE [Concomitant]
  4. LAMICTAL [Suspect]
     Indication: PANIC DISORDER
     Dosage: 100MG PER DAY
     Route: 048
     Dates: start: 20110222
  5. CYMBALTA [Concomitant]
  6. ABILIFY [Concomitant]

REACTIONS (2)
  - RASH [None]
  - TONGUE ULCERATION [None]
